FAERS Safety Report 4362692-5 (Version None)
Quarter: 2004Q2

REPORT INFORMATION
  Report Type: 
  Country: None (occurrence: None)
  Receive Date: 20040518
  Receipt Date: 20040505
  Transmission Date: 20050107
  Serious: Yes (Hospitalization)
  Sender: FDA-Public Use
  Company Number: 002#4#2004-00104

PATIENT
  Age: 80 Year
  Sex: Male

DRUGS (6)
  1. REGLAN [Suspect]
     Dosage: ORAL
     Route: 048
  2. POTASSIUM SUPPLEMENT [Concomitant]
  3. LIPID-LOWERING DRUG [Concomitant]
  4. HORMON REPLACEMENT [Concomitant]
  5. ASPIRIN [Concomitant]
  6. ALPHA-BLOCKER [Concomitant]

REACTIONS (5)
  - CAROTID ARTERY STENOSIS [None]
  - DEPRESSED LEVEL OF CONSCIOUSNESS [None]
  - ENCEPHALOPATHY [None]
  - SPINAL COMPRESSION FRACTURE [None]
  - TRANSIENT ISCHAEMIC ATTACK [None]
